FAERS Safety Report 8274112-9 (Version None)
Quarter: 2012Q2

REPORT INFORMATION
  Report Type: 
  Country: None (occurrence: None)
  Receive Date: 20120411
  Receipt Date: 20120404
  Transmission Date: 20120825
  Serious: Yes (Other)
  Sender: FDA-Public Use
  Company Number: JP-PFIZER INC-2012084625

PATIENT
  Age: 61 Year
  Sex: Female

DRUGS (1)
  1. VFEND [Suspect]
     Indication: SYSTEMIC MYCOSIS
     Dosage: UNK
     Route: 048
     Dates: start: 20111009, end: 20111019

REACTIONS (3)
  - PHOTOPHOBIA [None]
  - VISION BLURRED [None]
  - HEMIANOPIA [None]
